FAERS Safety Report 8131865 (Version 4)
Quarter: 2012Q4

REPORT INFORMATION
  Report Type: 
  Country: US (occurrence: US)
  Receive Date: 20110912
  Receipt Date: 20121024
  Transmission Date: 20130627
  Serious: Yes (Hospitalization)
  Sender: FDA-Public Use
  Company Number: US-BAYER-2011-082058

PATIENT
  Age: 32 Year
  Sex: Female
  Weight: 57 kg

DRUGS (45)
  1. YASMIN [Suspect]
     Indication: CONTRACEPTION
     Dates: start: 20070730, end: 20091127
  2. OCELLA [Suspect]
     Indication: CONTRACEPTION
     Dates: start: 20070730, end: 20091127
  3. TOPAMAX [Concomitant]
     Indication: MIGRAINE
     Dosage: 50 mg, UNK
     Route: 048
     Dates: start: 20071109
  4. TOPAMAX [Concomitant]
     Indication: MIGRAINE
     Dosage: 400 mg, everyday
  5. FOLIC ACID [Concomitant]
     Dosage: 1 mg, UNK
     Route: 048
     Dates: start: 20070706, end: 2008
  6. MULTIVITAMINS WITH MINERALS [MULTIVITAMINS WITH MINERALS] [Concomitant]
  7. MAGNESIUM [Concomitant]
     Indication: MAGNESIUM LOW
     Dosage: 400 mg, everyday
  8. MAGNESIUM [Concomitant]
     Indication: MIGRAINE PROPHYLAXIS
  9. IMITREX [Concomitant]
     Indication: MIGRAINE
     Dosage: UNK UNK, PRN
  10. IMITREX [Concomitant]
     Indication: MIGRAINE
     Dosage: 6 mg, UNK
  11. ZOMIG [Concomitant]
     Indication: MIGRAINE
     Dosage: 5 mg, PRN
  12. ZOMIG [Concomitant]
     Indication: MIGRAINE
     Dosage: 5 mg, PRN
  13. PREVACID [Concomitant]
     Indication: GERD
     Dosage: 150 UNK, UNK
     Route: 048
  14. FLUCONAZOLE [Concomitant]
     Dosage: 150 mg, UNK
     Route: 048
     Dates: start: 20080515
  15. FLUCONAZOLE [Concomitant]
  16. ACETAMINOPHEN W/OXYCODONE [Concomitant]
     Indication: PAIN NOS
     Dosage: UNK
     Route: 048
     Dates: start: 20080606, end: 20080625
  17. ACETAMINOPHEN W/OXYCODONE [Concomitant]
     Indication: PAIN NOS
     Dosage: UNK
     Route: 048
     Dates: start: 20080606, end: 20080625
  18. CIPROFLOXACIN [Concomitant]
     Dosage: UNK
     Route: 048
     Dates: start: 20080606
  19. EFFEXOR [Concomitant]
     Indication: MIGRAINE PROPHYLAXIS
     Dosage: 75 mg, UNK
     Route: 048
     Dates: start: 20080610
  20. EFFEXOR [Concomitant]
     Indication: MIGRAINE PROPHYLAXIS
     Dosage: Varied from 25 mg to 300 mg
  21. SULFAMETHOXAZOLE [Concomitant]
     Dosage: UNK
     Route: 048
     Dates: start: 20080625
  22. VITAMIN C [Concomitant]
     Indication: IMMUNODEFICIENCY
     Dosage: 1000 mg, everyday
  23. NSAID^S [Concomitant]
     Indication: MENSTRUAL CRAMPS
     Dosage: UNK UNK, PRN
  24. NSAID^S [Concomitant]
     Indication: PAIN
  25. NSAID^S [Concomitant]
     Indication: HEADACHE
  26. DIHYDROERGOTAMINE [Concomitant]
     Indication: MIGRAINE
  27. KETOROLAC [Concomitant]
     Indication: MIGRAINE
  28. TOPIRAMATE [Concomitant]
     Indication: MIGRAINE
     Dosage: UNK
     Dates: start: 20080218, end: 20080515
  29. MIGRANAL [Concomitant]
     Indication: MIGRAINE
     Route: 045
  30. SUMATRIPTAN SUCCINATE [Concomitant]
     Indication: MIGRAINE
  31. ZOLMITRIPTAN [Concomitant]
     Indication: MIGRAINE
  32. TREXIMET [Concomitant]
     Indication: MIGRAINE
  33. SUMATRIPTAN [Concomitant]
  34. ANTIHYPERTENSIVES [Concomitant]
     Indication: MIGRAINE
  35. OMEPRAZOLE [Concomitant]
     Indication: ACID REFLUX (OESOPHAGEAL)
     Dosage: 30 mg, daily
     Dates: start: 2005
  36. ANTIBIOTICS [Concomitant]
     Indication: URINARY TRACT INFECTION
  37. BACTRIM [Concomitant]
  38. ZOFRAN [Concomitant]
     Indication: NAUSEA
  39. ZOFRAN [Concomitant]
     Indication: VOMITING
  40. COMPAZINE [Concomitant]
  41. DHE [DIHYDROERGOTAMINE MESILATE] [Concomitant]
     Indication: MIGRAINE
  42. MOTRIN [Concomitant]
     Indication: MENSTRUAL CRAMP
     Dosage: 800 mg, PRN
     Dates: start: 1999
  43. MOTRIN [Concomitant]
     Indication: PAIN
  44. MOTRIN [Concomitant]
     Indication: HEADACHE
  45. SEASONIQUE [Concomitant]
     Dosage: UNK
     Dates: start: 2004

REACTIONS (10)
  - Renal failure acute [None]
  - Pancreatitis acute [None]
  - Appendicectomy [None]
  - Appendicitis perforated [None]
  - Cholelithiasis [None]
  - Cholecystitis chronic [None]
  - Gallbladder disorder [None]
  - Injury [None]
  - Pain [None]
  - Mental disorder [None]
